FAERS Safety Report 9729423 (Version 1)
Quarter: 2013Q4

REPORT INFORMATION
  Report Type: Spontaneous
  Country: US (occurrence: US)
  Receive Date: 20131204
  Receipt Date: 20131204
  Transmission Date: 20140711
  Serious: No
  Sender: FDA-Public Use
  Company Number: US-GILEAD-2009-0021226

PATIENT
  Age: 85 Year
  Sex: Female
  Weight: 72.12 kg

DRUGS (11)
  1. LETAIRIS [Suspect]
     Indication: PULMONARY ARTERIAL HYPERTENSION
     Route: 048
     Dates: start: 20090306, end: 20090318
  2. COUMADIN [Concomitant]
  3. TOPROL XL [Concomitant]
  4. BENICAR HCT [Concomitant]
  5. PRAVACHOL [Concomitant]
  6. ASA [Concomitant]
  7. JANUVIA [Concomitant]
  8. AMARYL [Concomitant]
  9. LYRICA [Concomitant]
  10. K-DUR [Concomitant]
  11. AMITRIPTYLIN [Concomitant]

REACTIONS (2)
  - Malaise [Recovering/Resolving]
  - Pain [Recovering/Resolving]
